FAERS Safety Report 18989924 (Version 2)
Quarter: 2024Q4

REPORT INFORMATION
  Report Type: Spontaneous
  Country: FR (occurrence: FR)
  Receive Date: 20210310
  Receipt Date: 20241009
  Transmission Date: 20250115
  Serious: Yes (Death, Other)
  Sender: ROCHE
  Company Number: FR-CELLTRION HEALTHCARE HUNGARY KFT-2020FR021196

PATIENT
  Age: 59 Year
  Sex: Male
  Weight: 71 kg

DRUGS (14)
  1. POLATUZUMAB VEDOTIN [Suspect]
     Active Substance: POLATUZUMAB VEDOTIN
     Indication: Diffuse large B-cell lymphoma
     Dosage: 1.8 MG/KG EVERY 21 DAYS (ONGOING) SUBSEQUENT DOSE ON 17/MAR/2020 AND 08/APR/2020
     Route: 065
     Dates: start: 20200221
  2. RITUXIMAB [Suspect]
     Active Substance: RITUXIMAB
     Indication: Diffuse large B-cell lymphoma
     Dosage: 375 MG/M2, EVERY 21 DAYS (D1 EVERY 21 DAYS) SUBSEQUENT DOSE ON 17/MAR/2020 AND 07/APR/2020
     Route: 041
     Dates: start: 20200220
  3. BENDAMUSTINE [Suspect]
     Active Substance: BENDAMUSTINE
     Indication: Diffuse large B-cell lymphoma
     Dosage: 90 MG/M2 EVERY 10 DAYS (D1 AND D2 EVERY 21 DAYS) SUBSEQUENT DOSE ON 17/MAR/2020 AND 07/APR/2020
     Route: 065
     Dates: start: 20200221
  4. VALACYCLOVIR HYDROCHLORIDE [Concomitant]
     Active Substance: VALACYCLOVIR HYDROCHLORIDE
     Indication: Prophylaxis
     Dosage: 500 MG, EVERY 0.5 DAY
     Route: 048
     Dates: start: 20180401
  5. LANTUS [Concomitant]
     Active Substance: INSULIN GLARGINE
     Indication: Prophylaxis
     Dosage: 1 DF, MONTHLY
     Route: 055
     Dates: start: 20180401
  6. PENTACARINAT [Concomitant]
     Active Substance: PENTAMIDINE ISETHIONATE
     Indication: Prophylaxis
     Dosage: 1 DF, MONTHLY
     Route: 055
     Dates: start: 20180401
  7. CYAMEMAZINE [Concomitant]
     Active Substance: CYAMEMAZINE
     Dosage: 30 DROP, QD
  8. TINZAPARIN [Concomitant]
     Active Substance: TINZAPARIN
  9. PREDNISONE [Concomitant]
     Active Substance: PREDNISONE
     Dosage: 40 MG, QD
     Route: 048
     Dates: start: 20190105
  10. OXYCONTIN [Concomitant]
     Active Substance: OXYCODONE HYDROCHLORIDE
     Dosage: 30 MG EVERY 0.5 DAY
  11. ZOLPIDEM [Concomitant]
     Active Substance: ZOLPIDEM TARTRATE
     Dosage: 10 MG, QD
  12. PEGFILGRASTIM [Concomitant]
     Active Substance: PEGFILGRASTIM
     Dosage: 6 MG
     Dates: start: 20200224
  13. LANSOPRAZOLE [Concomitant]
     Active Substance: LANSOPRAZOLE
     Indication: Gastrointestinal disorder prophylaxis
     Dosage: 20 MG, QD
     Route: 048
     Dates: start: 20190105
  14. OXYCODONE HYDROCHLORIDE [Concomitant]
     Active Substance: OXYCODONE HYDROCHLORIDE
     Dosage: 10 MG EVERY 0.16 DAY

REACTIONS (2)
  - Death [Fatal]
  - Pneumonia [Unknown]

NARRATIVE: CASE EVENT DATE: 20200228
